FAERS Safety Report 5699271-3 (Version None)
Quarter: 2008Q2

REPORT INFORMATION
  Report Type: 
  Country: None (occurrence: None)
  Receive Date: 20080404
  Receipt Date: 20080328
  Transmission Date: 20081010
  Serious: Yes (Other)
  Sender: FDA-Public Use
  Company Number: 2008007799

PATIENT
  Age: 1 Year
  Sex: Male

DRUGS (1)
  1. BENADRYL [Suspect]
     Indication: NASOPHARYNGITIS
     Dosage: 2.5 ML ONCE,ORAL
     Route: 048
     Dates: start: 20080326, end: 20080326

REACTIONS (1)
  - GAIT DISTURBANCE [None]
